FAERS Safety Report 6880944-1 (Version None)
Quarter: 2010Q3

REPORT INFORMATION
  Report Type: 
  Country: None (occurrence: None)
  Receive Date: 20100728
  Receipt Date: 20100728
  Transmission Date: 20110219
  Serious: Yes (Death, Hospitalization)
  Sender: FDA-Public Use
  Company Number: DE-ABBOTT-10P-062-0658074-00

PATIENT
  Sex: Female

DRUGS (41)
  1. HUMIRA [Suspect]
     Indication: RHEUMATOID ARTHRITIS
     Dates: start: 20040324
  2. HUMIRA [Suspect]
  3. HUMIRA [Suspect]
     Dates: end: 20070101
  4. MTX [Suspect]
     Indication: PRODUCT USED FOR UNKNOWN INDICATION
     Route: 048
     Dates: start: 19960301
  5. MTX [Suspect]
  6. MTX [Suspect]
     Dosage: TUESDAY AND THURSDAY
     Dates: end: 20070918
  7. DECORTIN [Suspect]
     Indication: PRODUCT USED FOR UNKNOWN INDICATION
     Dosage: IN MORNING
     Dates: end: 20070918
  8. RTX [Concomitant]
     Indication: PRODUCT USED FOR UNKNOWN INDICATION
     Dates: start: 20070717, end: 20070801
  9. ANAK [Concomitant]
     Indication: PRODUCT USED FOR UNKNOWN INDICATION
     Dates: start: 20050101, end: 20050401
  10. GOLD P [Concomitant]
     Indication: PRODUCT USED FOR UNKNOWN INDICATION
     Dates: start: 20040701, end: 20050101
  11. CYCL. A [Concomitant]
     Indication: PRODUCT USED FOR UNKNOWN INDICATION
     Dates: start: 20040401, end: 20040701
  12. VALERON RETARD [Concomitant]
     Indication: PRODUCT USED FOR UNKNOWN INDICATION
     Dosage: IN MORNING
  13. VALERON RETARD [Concomitant]
     Dosage: IN EVENING
  14. ARCOXIA [Concomitant]
     Indication: PRODUCT USED FOR UNKNOWN INDICATION
  15. IDEOS [Concomitant]
     Indication: PRODUCT USED FOR UNKNOWN INDICATION
  16. PANTOZOL [Concomitant]
     Indication: PRODUCT USED FOR UNKNOWN INDICATION
     Dosage: IN EVENING
  17. NOVODIGAL MITE [Concomitant]
     Indication: PRODUCT USED FOR UNKNOWN INDICATION
     Dosage: IN MORNING
  18. METOPROLOL SUCCINATE [Concomitant]
     Indication: PRODUCT USED FOR UNKNOWN INDICATION
     Dosage: IN MORNING AND EVENING:1-0-0.5
  19. FOLSAN [Concomitant]
     Indication: PRODUCT USED FOR UNKNOWN INDICATION
     Dosage: EVERY THURSDAY
  20. REKAWAN [Concomitant]
     Indication: PRODUCT USED FOR UNKNOWN INDICATION
     Dosage: EVERY 2ND DAY
  21. FOSAMAX [Concomitant]
     Indication: PRODUCT USED FOR UNKNOWN INDICATION
     Dosage: SATURDAYS
  22. ACE INHIBITOR NOS [Concomitant]
     Indication: CARDIAC FAILURE
  23. ACE INHIBITOR NOS [Concomitant]
     Indication: OEDEMA PERIPHERAL
  24. TRANSTEC [Concomitant]
     Indication: PAIN
     Route: 062
  25. DURAGESIC-100 [Concomitant]
     Indication: PRODUCT USED FOR UNKNOWN INDICATION
     Route: 062
  26. NATRIUMCHLORIDE [Concomitant]
     Indication: PRODUCT USED FOR UNKNOWN INDICATION
     Dosage: IN MORNING
  27. DECORTIN [Concomitant]
     Dosage: IN MORNING
  28. HEPARIN [Concomitant]
     Indication: PRODUCT USED FOR UNKNOWN INDICATION
     Dosage: IN MORNING AND EVENING
  29. LYRICA [Concomitant]
     Indication: PRODUCT USED FOR UNKNOWN INDICATION
     Dosage: IN MORNING AND EVENING
  30. NULYTELY [Concomitant]
     Indication: PRODUCT USED FOR UNKNOWN INDICATION
     Dosage: IN MORNING AND EVENING
  31. RITUXIMAB [Concomitant]
     Indication: PRODUCT USED FOR UNKNOWN INDICATION
     Dosage: 1000 MILLIGRAM 1ST DOSE
     Dates: start: 20070714, end: 20070714
  32. RITUXIMAB [Concomitant]
     Dates: start: 20070801, end: 20070801
  33. AZULFIDINE [Concomitant]
     Indication: PRODUCT USED FOR UNKNOWN INDICATION
  34. RESOCHIN [Concomitant]
     Indication: PRODUCT USED FOR UNKNOWN INDICATION
  35. SANDIMMUNE [Concomitant]
     Indication: PRODUCT USED FOR UNKNOWN INDICATION
  36. DIVERSE BIOLOGICS [Concomitant]
     Indication: PRODUCT USED FOR UNKNOWN INDICATION
  37. ARAVA [Concomitant]
     Indication: PRODUCT USED FOR UNKNOWN INDICATION
     Dates: start: 20000101
  38. ARAVA [Concomitant]
     Dates: start: 20001214
  39. REMICADE [Concomitant]
     Indication: PRODUCT USED FOR UNKNOWN INDICATION
     Dates: start: 20020802
  40. ENBREL [Concomitant]
     Indication: PRODUCT USED FOR UNKNOWN INDICATION
     Dates: start: 20040119, end: 20040301
  41. KINERET [Concomitant]
     Indication: PRODUCT USED FOR UNKNOWN INDICATION
     Dates: start: 20050126, end: 20050301

REACTIONS (23)
  - ANTINUCLEAR ANTIBODY POSITIVE [None]
  - ARTHRALGIA [None]
  - BACK PAIN [None]
  - CIRCULATORY COLLAPSE [None]
  - DECUBITUS ULCER [None]
  - DRUG INEFFECTIVE [None]
  - GENERAL PHYSICAL HEALTH DETERIORATION [None]
  - GLOSSODYNIA [None]
  - HEART SOUNDS ABNORMAL [None]
  - ILL-DEFINED DISORDER [None]
  - LIMB DEFORMITY [None]
  - MOBILITY DECREASED [None]
  - MOTOR DYSFUNCTION [None]
  - OSTEOPOROTIC FRACTURE [None]
  - PAIN [None]
  - PAROTID GLAND ENLARGEMENT [None]
  - PNEUMONIA [None]
  - RHEUMATOID ARTHRITIS [None]
  - SEPSIS [None]
  - SPINAL COLUMN STENOSIS [None]
  - STAPHYLOCOCCAL SEPSIS [None]
  - THORACIC VERTEBRAL FRACTURE [None]
  - VARICOSE VEIN [None]
